FAERS Safety Report 7089310-X (Version None)
Quarter: 2010Q4

REPORT INFORMATION
  Report Type: 
  Country: None (occurrence: None)
  Receive Date: 20101108
  Receipt Date: 20101026
  Transmission Date: 20110411
  Serious: Yes (Hospitalization, Other)
  Sender: FDA-Public Use
  Company Number: US-GENZYME-FABR-1001636

PATIENT

DRUGS (15)
  1. FABRAZYME [Suspect]
     Indication: FABRY'S DISEASE
     Dosage: 35 MG, Q2W
     Route: 042
     Dates: start: 20031015
  2. ACETAMINOPHEN [Concomitant]
     Indication: PREMEDICATION
     Route: 048
  3. BENADRYL [Concomitant]
     Indication: PREMEDICATION
     Route: 048
  4. KLOR-CON [Concomitant]
  5. PROGRAF [Concomitant]
  6. HYDROCHLOROTHIAZIDE [Concomitant]
  7. FUROSEMIDE [Concomitant]
  8. METHADONE [Concomitant]
  9. RAPAMUNE [Concomitant]
  10. GABAPENTIN [Concomitant]
  11. LYRICA [Concomitant]
  12. MULTI-VITAMINS [Concomitant]
  13. CALCIUM CARBONATE [Concomitant]
  14. TYLENOL PM [Concomitant]
     Dosage: UNK
  15. HYDROCODONE BITARTRATE [Concomitant]
     Dosage: UNK

REACTIONS (1)
  - SUICIDAL IDEATION [None]
